FAERS Safety Report 24809495 (Version 1)
Quarter: 2025Q1

REPORT INFORMATION
  Report Type: Spontaneous
  Country: US (occurrence: US)
  Receive Date: 20250106
  Receipt Date: 20250106
  Transmission Date: 20250409
  Serious: Yes (Other)
  Sender: Steriscience PTE
  Company Number: US-STERISCIENCE B.V.-2024-ST-001913

PATIENT
  Sex: Female

DRUGS (7)
  1. GANCICLOVIR SODIUM [Suspect]
     Active Substance: GANCICLOVIR SODIUM
     Indication: Cytomegalovirus viraemia
     Route: 065
  2. CYTOGAM [Concomitant]
     Active Substance: HUMAN CYTOMEGALOVIRUS IMMUNE GLOBULIN
     Indication: Cytomegalovirus viraemia
     Route: 065
  3. VALGANCICLOVIR [Concomitant]
     Active Substance: VALGANCICLOVIR
     Indication: Cytomegalovirus viraemia
     Route: 065
  4. FLUDARABINE [Concomitant]
     Active Substance: FLUDARABINE PHOSPHATE
     Indication: Prophylaxis against graft versus host disease
     Route: 065
  5. BUSULFAN [Concomitant]
     Active Substance: BUSULFAN
     Indication: Prophylaxis against graft versus host disease
     Route: 065
  6. THYMOCYTE IMMUNE GLOBULIN NOS [Concomitant]
     Active Substance: THYMOCYTE IMMUNE GLOBULIN NOS
     Indication: Prophylaxis against graft versus host disease
     Route: 065
  7. THIOTEPA [Concomitant]
     Active Substance: THIOTEPA
     Indication: Prophylaxis against graft versus host disease
     Route: 065

REACTIONS (1)
  - Drug resistance [Unknown]
